FAERS Safety Report 5195552-0 (Version None)
Quarter: 2006Q4

REPORT INFORMATION
  Report Type: 
  Country: None (occurrence: None)
  Receive Date: 20061222
  Receipt Date: 20061222
  Transmission Date: 20070319
  Serious: Yes (Life-Threatening, Hospitalization)
  Sender: FDA-Public Use
  Company Number: None

PATIENT
  Age: 30 Year
  Sex: Female
  Weight: 77.2 kg

DRUGS (3)
  1. DIAZEPAM [Suspect]
     Indication: ANXIETY
     Dosage: 150 MG ALL MEDS TAKEN IN SINGLE DAY
     Route: 048
  2. CLONAZEPAM [Suspect]
     Indication: SELF-MEDICATION
     Dosage: 25MG PO
     Route: 048
  3. METHOCARBAMOL [Suspect]
     Dosage: 2 GMS PO
     Route: 048

REACTIONS (6)
  - ALCOHOL POISONING [None]
  - EMOTIONAL DISTRESS [None]
  - LETHARGY [None]
  - MULTIPLE DRUG OVERDOSE [None]
  - SELF INJURIOUS BEHAVIOUR [None]
  - SUICIDE ATTEMPT [None]
